FAERS Safety Report 7061026-5 (Version None)
Quarter: 2010Q4

REPORT INFORMATION
  Report Type: 
  Country: None (occurrence: None)
  Receive Date: 20101026
  Receipt Date: 20101020
  Transmission Date: 20110411
  Serious: Yes (Hospitalization, Other)
  Sender: FDA-Public Use
  Company Number: US-PFIZER INC-2010133601

PATIENT
  Sex: Male
  Weight: 113 kg

DRUGS (1)
  1. LIPITOR [Suspect]
     Indication: BLOOD CHOLESTEROL ABNORMAL
     Dosage: 10 MG, 1X/DAY
     Route: 048
     Dates: end: 20100101

REACTIONS (11)
  - ARTHRALGIA [None]
  - ASTHENIA [None]
  - DIZZINESS [None]
  - EYE IRRITATION [None]
  - OCULAR HYPERAEMIA [None]
  - PAIN [None]
  - PURULENT DISCHARGE [None]
  - RENAL FAILURE [None]
  - SKIN ULCER [None]
  - STOMATITIS [None]
  - VASCULITIS [None]
